FAERS Safety Report 4716772-2 (Version None)
Quarter: 2005Q3

REPORT INFORMATION
  Report Type: 
  Country: None (occurrence: None)
  Receive Date: 20050714
  Receipt Date: 20050629
  Transmission Date: 20060218
  Serious: Yes (Other)
  Sender: FDA-Public Use
  Company Number: EM2005-0302

PATIENT
  Age: 36 Year
  Sex: Male
  Weight: 52 kg

DRUGS (9)
  1. MACROLIN [Suspect]
     Indication: DRUG USE FOR UNKNOWN INDICATION
     Dosage: 4.5 MIU, BID, (SEE IMAGE)
     Dates: start: 20050110, end: 20050115
  2. MACROLIN [Suspect]
     Indication: HIV INFECTION
     Dosage: 4.5 MIU, BID, (SEE IMAGE)
     Dates: start: 20050110, end: 20050115
  3. MACROLIN [Suspect]
     Indication: DRUG USE FOR UNKNOWN INDICATION
     Dosage: 4.5 MIU, BID, (SEE IMAGE)
     Dates: start: 20050201
  4. MACROLIN [Suspect]
     Indication: HIV INFECTION
     Dosage: 4.5 MIU, BID, (SEE IMAGE)
     Dates: start: 20050201
  5. VIREAD [Concomitant]
  6. ZIAGEN [Concomitant]
  7. SUSTIVA [Concomitant]
  8. PLAVIX [Concomitant]
  9. BACTRIM [Concomitant]

REACTIONS (3)
  - ANGIONEUROTIC OEDEMA [None]
  - FATIGUE [None]
  - NASOPHARYNGITIS [None]
